FAERS Safety Report 16789048 (Version 2)
Quarter: 2019Q4

REPORT INFORMATION
  Report Type: Spontaneous
  Country: IL (occurrence: IL)
  Receive Date: 20190910
  Receipt Date: 20191031
  Transmission Date: 20200122
  Serious: Yes (Other)
  Sender: FDA-Public Use
  Company Number: IL-HORIZON-KRY-0529-2019

PATIENT
  Age: 74 Year
  Sex: Male

DRUGS (5)
  1. ALLORIL [Concomitant]
  2. RAMIPRIL. [Concomitant]
     Active Substance: RAMIPRIL
  3. INDOVIS [Concomitant]
  4. KRYSTEXXA [Suspect]
     Active Substance: PEGLOTICASE
     Indication: GOUT
     Dates: start: 20190702, end: 20190730
  5. DULOXEINE [Concomitant]

REACTIONS (5)
  - Inappropriate schedule of product administration [Unknown]
  - Gout [Unknown]
  - Dehydration [Unknown]
  - Acute kidney injury [Unknown]
  - Renal impairment [Recovered/Resolved]

NARRATIVE: CASE EVENT DATE: 20190810
